FAERS Safety Report 4837018-0 (Version None)
Quarter: 2005Q4

REPORT INFORMATION
  Report Type: 
  Country: None (occurrence: None)
  Receive Date: 20051121
  Receipt Date: 20051108
  Transmission Date: 20060501
  Serious: Yes (Hospitalization)
  Sender: FDA-Public Use
  Company Number: BEWYE125909NOV05

PATIENT
  Age: 59 Year
  Sex: Female

DRUGS (11)
  1. RAPAMUNE [Suspect]
     Indication: PROPHYLAXIS AGAINST TRANSPLANT REJECTION
     Dosage: 3 MG 1X PER 1 DAY
     Route: 048
     Dates: start: 20050816
  2. ZENAPAX [Suspect]
     Indication: PROPHYLAXIS AGAINST TRANSPLANT REJECTION
     Route: 048
     Dates: start: 20050816
  3. ZOCOR [Concomitant]
  4. PANTOPRAZOLE SODIUM [Concomitant]
  5. COTRIM E (SULFAMETHOXAZOLE/TRIMETHOPRIM) [Concomitant]
  6. SODIUM BICARBONATE IN PLASTIC CONTAINER [Concomitant]
  7. CARVEDILOL [Concomitant]
  8. MOXONIDINE( MOXONIDINE) [Concomitant]
  9. PREDNISOLONE [Concomitant]
  10. CALCIUM CARBONATE (CALCIUM CARBONATE) [Concomitant]
  11. CELLCEPT [Concomitant]

REACTIONS (6)
  - ANURIA [None]
  - C-REACTIVE PROTEIN INCREASED [None]
  - CYTOMEGALOVIRUS ANTIGEN POSITIVE [None]
  - HYPOKALAEMIA [None]
  - HYPOXIA [None]
  - RESPIRATORY ALKALOSIS [None]
